FAERS Safety Report 10853437 (Version 1)
Quarter: 2015Q1

REPORT INFORMATION
  Report Type: Spontaneous
  Country: US (occurrence: None)
  Receive Date: 20150218
  Receipt Date: 20150218
  Transmission Date: 20150721
  Serious: Yes (Life-Threatening, Hospitalization)
  Sender: FDA-Public Use
  Company Number: None

PATIENT
  Age: 12 Year
  Sex: Female
  Weight: 44.45 kg

DRUGS (1)
  1. TAMIFLU [Suspect]
     Active Substance: OSELTAMIVIR PHOSPHATE
     Indication: INFLUENZA
     Dosage: 1 CAPSULE ONCE DAILY TAKEN BY MOUTH
     Route: 048
     Dates: start: 20150213, end: 20150213

REACTIONS (3)
  - Swollen tongue [None]
  - Lip swelling [None]
  - Oral pain [None]

NARRATIVE: CASE EVENT DATE: 20150213
